FAERS Safety Report 18231038 (Version 1)
Quarter: 2020Q3

REPORT INFORMATION
  Report Type: Spontaneous
  Country: US (occurrence: US)
  Receive Date: 20200904
  Receipt Date: 20200904
  Transmission Date: 20201103
  Serious: Yes (Other)
  Sender: FDA-Public Use
  Company Number: US-CADILA HEALTHCARE LIMITED-US-ZYDUS-055119

PATIENT

DRUGS (2)
  1. LENALIDOMIDE [Suspect]
     Active Substance: LENALIDOMIDE
     Indication: DERMATITIS
     Dosage: 10 MILLIGRAM, QD
     Route: 048
     Dates: start: 201808, end: 201903
  2. METHYLPREDNISOLONE. [Suspect]
     Active Substance: METHYLPREDNISOLONE
     Indication: DERMATITIS
     Dosage: 40 MILLIGRAM, QOD
     Route: 048
     Dates: start: 201808

REACTIONS (4)
  - Headache [Unknown]
  - Alopecia [Unknown]
  - Gastrointestinal disorder [Unknown]
  - Drug ineffective [Recovered/Resolved]
